FAERS Safety Report 19896256 (Version 1)
Quarter: 2021Q3

REPORT INFORMATION
  Report Type: Spontaneous
  Country: JP (occurrence: JP)
  Receive Date: 20210929
  Receipt Date: 20210929
  Transmission Date: 20211014
  Serious: Yes (Other)
  Sender: FDA-Public Use
  Company Number: JP-EAGLE PHARMACEUTICALS, INC.-JP-2021EAG000195

PATIENT
  Age: 68 Year
  Sex: Female

DRUGS (3)
  1. BENDAMUSTINE HYDROCHLORIDE. [Suspect]
     Active Substance: BENDAMUSTINE HYDROCHLORIDE
     Indication: FOLLICULAR LYMPHOMA
     Dosage: UNK
     Route: 041
  2. PREDNISOLONE. [Concomitant]
     Active Substance: PREDNISOLONE
     Indication: PEMPHIGUS
     Dosage: 45 MG, UNK
     Route: 065
  3. GAZYVA [Concomitant]
     Active Substance: OBINUTUZUMAB
     Indication: FOLLICULAR LYMPHOMA
     Dosage: UNK
     Route: 041

REACTIONS (1)
  - Obliterative bronchiolitis [Unknown]
